FAERS Safety Report 12350813 (Version 1)
Quarter: 2016Q2

REPORT INFORMATION
  Report Type: Spontaneous
  Country: US (occurrence: None)
  Receive Date: 20160509
  Receipt Date: 20160509
  Transmission Date: 20160815
  Serious: Yes (Life-Threatening, Disabling, Other)
  Sender: FDA-Public Use
  Company Number: None

PATIENT
  Age: 59 Year
  Sex: Male
  Weight: 78.93 kg

DRUGS (6)
  1. TRILEPTAL [Suspect]
     Active Substance: OXCARBAZEPINE
     Indication: MAJOR DEPRESSION
     Dosage: 2 PILLS TWO TIMES PER DAY BY MOUTH
     Route: 048
     Dates: start: 20160312, end: 20160426
  2. SYMVASTATIN (ZOCOR) [Concomitant]
  3. PAROXETINE HCL (PAXIL) [Concomitant]
  4. TRILEPTAL [Suspect]
     Active Substance: OXCARBAZEPINE
     Indication: SCHIZOAFFECTIVE DISORDER
     Dosage: 2 PILLS TWO TIMES PER DAY BY MOUTH
     Route: 048
     Dates: start: 20160312, end: 20160426
  5. ABILIFY [Concomitant]
     Active Substance: ARIPIPRAZOLE
  6. VITAMINS FOR SENIOR CITIZENS [Concomitant]

REACTIONS (22)
  - Dry mouth [None]
  - Insomnia [None]
  - Social avoidant behaviour [None]
  - Speech disorder [None]
  - Crying [None]
  - Mood swings [None]
  - Asthenia [None]
  - Libido decreased [None]
  - Paranoia [None]
  - Fear [None]
  - No therapeutic response [None]
  - Disturbance in attention [None]
  - Pollakiuria [None]
  - Coordination abnormal [None]
  - Weight decreased [None]
  - Anxiety [None]
  - Thirst [None]
  - Balance disorder [None]
  - Condition aggravated [None]
  - Constipation [None]
  - Bereavement [None]
  - Activities of daily living impaired [None]

NARRATIVE: CASE EVENT DATE: 20160303
